FAERS Safety Report 7044698-0 (Version None)
Quarter: 2010Q4

REPORT INFORMATION
  Report Type: 
  Country: None (occurrence: None)
  Receive Date: 20101014
  Receipt Date: 20100930
  Transmission Date: 20110411
  Serious: Yes (Hospitalization, Other)
  Sender: FDA-Public Use
  Company Number: US-SHIONOGI USA, INC-2010000047

PATIENT

DRUGS (1)
  1. EPINEPHRINE (GREENSTONE) [Suspect]
     Indication: ASTHMA EXERCISE INDUCED
     Dosage: 0.3 MG, PRN
     Dates: start: 20100901, end: 20100901

REACTIONS (3)
  - DEVICE FAILURE [None]
  - MEDICATION ERROR [None]
  - PRODUCT QUALITY ISSUE [None]
